FAERS Safety Report 8124676-0 (Version None)
Quarter: 2012Q1

REPORT INFORMATION
  Report Type: 
  Country: None (occurrence: None)
  Receive Date: 20120209
  Receipt Date: 20120209
  Transmission Date: 20120608
  Serious: No
  Sender: FDA-Public Use
  Company Number: None

PATIENT
  Age: 10 Year
  Sex: Male
  Weight: 47.627 kg

DRUGS (1)
  1. IMIPRAMINE [Suspect]
     Indication: ENURESIS
     Dosage: 25 MG
     Dates: start: 20111215, end: 20120124

REACTIONS (5)
  - CRYING [None]
  - FATIGUE [None]
  - DECREASED INTEREST [None]
  - DEPRESSION [None]
  - SUICIDAL IDEATION [None]
